FAERS Safety Report 5964383-3 (Version None)
Quarter: 2008Q4

REPORT INFORMATION
  Report Type: 
  Country: None (occurrence: None)
  Receive Date: 20081124
  Receipt Date: 20081112
  Transmission Date: 20090506
  Serious: Yes (Other)
  Sender: FDA-Public Use
  Company Number: BR-PFIZER INC-2008096453

PATIENT
  Sex: Female

DRUGS (1)
  1. ZYVOX [Suspect]

REACTIONS (2)
  - DELIRIUM [None]
  - MEMORY IMPAIRMENT [None]
